FAERS Safety Report 21880501 (Version 1)
Quarter: 2023Q1

REPORT INFORMATION
  Report Type: Report from Study
  Country: US (occurrence: US)
  Receive Date: 20230118
  Receipt Date: 20230118
  Transmission Date: 20230418
  Serious: No
  Sender: FDA-Public Use
  Company Number: US-ABBVIE-4199874

PATIENT
  Age: 71 Year
  Sex: Female

DRUGS (2)
  1. HUMIRA [Suspect]
     Active Substance: ADALIMUMAB
     Indication: Rheumatoid arthritis
     Route: 058
     Dates: start: 20221014
  2. HUMIRA [Suspect]
     Active Substance: ADALIMUMAB
     Indication: Systemic lupus erythematosus

REACTIONS (5)
  - Product administered at inappropriate site [Unknown]
  - Pain in extremity [Unknown]
  - Hypoaesthesia [Unknown]
  - Off label use [Unknown]
  - Device use issue [Unknown]

NARRATIVE: CASE EVENT DATE: 20221111
